FAERS Safety Report 11430796 (Version 1)
Quarter: 2015Q3

REPORT INFORMATION
  Report Type: Spontaneous
  Country: US (occurrence: US)
  Receive Date: 20150828
  Receipt Date: 20150828
  Transmission Date: 20151125
  Serious: Yes (Other)
  Sender: FDA-Public Use
  Company Number: US-ROCHE-382876

PATIENT
  Age: 56 Year
  Sex: Female
  Weight: 85.94 kg

DRUGS (15)
  1. RIBASPHERE [Suspect]
     Active Substance: RIBAVIRIN
     Route: 048
     Dates: start: 201306
  2. INFERGEN [Suspect]
     Active Substance: INTERFERON ALFACON-1
     Indication: PRODUCT USED FOR UNKNOWN INDICATION
     Route: 058
  3. LORAZEPAM. [Concomitant]
     Active Substance: LORAZEPAM
     Indication: ANXIETY
     Route: 048
  4. TRAZODONE [Concomitant]
     Active Substance: TRAZODONE HYDROCHLORIDE
     Indication: INSOMNIA
     Route: 048
  5. ZOLOFT [Concomitant]
     Active Substance: SERTRALINE HYDROCHLORIDE
     Indication: DEPRESSION
     Route: 048
  6. LAMICTAL [Concomitant]
     Active Substance: LAMOTRIGINE
  7. SEROQUEL [Concomitant]
     Active Substance: QUETIAPINE FUMARATE
  8. PEGASYS [Suspect]
     Active Substance: PEGINTERFERON ALFA-2A
     Indication: HEPATITIS C
     Dosage: STRENGTH: 180 MCG/0.5ML.
     Route: 058
  9. PEGASYS [Suspect]
     Active Substance: PEGINTERFERON ALFA-2A
     Dosage: STRENGTH: 180 MCG/0.5ML.
     Route: 058
  10. RIBASPHERE [Suspect]
     Active Substance: RIBAVIRIN
     Dosage: 2 TAKEN IN THE MORNING AND 3 TAKEN IN THE EVENING.
     Route: 048
     Dates: start: 20130222
  11. RIBASPHERE [Suspect]
     Active Substance: RIBAVIRIN
     Indication: HEPATITIS C
     Dosage: 2 TAKEN IN THE MORNING AND 3 TAKEN IN THE EVENING.
     Route: 048
     Dates: start: 20040730
  12. TELAPREVIR [Suspect]
     Active Substance: TELAPREVIR
     Indication: HEPATITIS C
     Route: 065
  13. BUSPAR [Concomitant]
     Active Substance: BUSPIRONE HYDROCHLORIDE
  14. LAMICTAL [Concomitant]
     Active Substance: LAMOTRIGINE
  15. BYSTOLIC [Concomitant]
     Active Substance: NEBIVOLOL HYDROCHLORIDE
     Indication: BLOOD PRESSURE ABNORMAL
     Route: 048

REACTIONS (28)
  - Back pain [Not Recovered/Not Resolved]
  - Influenza like illness [Unknown]
  - Nausea [Unknown]
  - Visual acuity reduced [Unknown]
  - Anxiety [Unknown]
  - Weight increased [Unknown]
  - Mood altered [Recovered/Resolved]
  - Platelet count decreased [Recovered/Resolved]
  - Pain [Unknown]
  - Abdominal distension [Unknown]
  - Rectal haemorrhage [Unknown]
  - Weight decreased [Not Recovered/Not Resolved]
  - Diarrhoea [Not Recovered/Not Resolved]
  - Depressed mood [Unknown]
  - Breast cyst [Unknown]
  - White blood cell count decreased [Recovered/Resolved]
  - No therapeutic response [Unknown]
  - Rash [Unknown]
  - Back pain [Unknown]
  - Vomiting [Unknown]
  - Arthralgia [Unknown]
  - Decreased appetite [Not Recovered/Not Resolved]
  - Red blood cell count decreased [Recovered/Resolved]
  - Hypertension [Recovered/Resolved]
  - Fatigue [Unknown]
  - Injection site bruising [Not Recovered/Not Resolved]
  - Anaemia [Unknown]
  - Social avoidant behaviour [Unknown]

NARRATIVE: CASE EVENT DATE: 200408
